FAERS Safety Report 4954710-8 (Version None)
Quarter: 2006Q1

REPORT INFORMATION
  Report Type: 
  Country: None (occurrence: None)
  Receive Date: 20060131
  Receipt Date: 20050111
  Transmission Date: 20060701
  Serious: No
  Sender: FDA-Public Use
  Company Number: 05P-163-0285994-00

PATIENT
  Sex: Female

DRUGS (1)
  1. OMNICEF [Suspect]
     Indication: BRONCHITIS
     Dosage: 300 MG, 2 IN 1 D, PER ORAL
     Route: 048

REACTIONS (2)
  - CLOSTRIDIUM COLITIS [None]
  - HAEMATOCHEZIA [None]
